FAERS Safety Report 6794890-5 (Version None)
Quarter: 2010Q2

REPORT INFORMATION
  Report Type: 
  Country: None (occurrence: None)
  Receive Date: 20100625
  Receipt Date: 20100617
  Transmission Date: 20101027
  Serious: Yes (Hospitalization, Other)
  Sender: FDA-Public Use
  Company Number: BE-BAYER-201029266GPV

PATIENT
  Age: 86 Year
  Sex: Female

DRUGS (7)
  1. AVELOX [Suspect]
     Dosage: UNIT DOSE: 400 MG
     Route: 048
     Dates: start: 20100418, end: 20100422
  2. REMINYL [Suspect]
     Indication: DEMENTIA ALZHEIMER'S TYPE
     Dosage: UNIT DOSE: 24 MG
     Route: 048
     Dates: end: 20100422
  3. PLAVIX [Concomitant]
     Dosage: UNIT DOSE: 75 MG
     Route: 048
  4. FUROSEMIDE [Concomitant]
     Route: 048
  5. DOGMATIL [Concomitant]
     Dosage: UNIT DOSE: 50 MG
     Route: 048
  6. MULTIVITAMIN [Concomitant]
  7. LACTEOL [Concomitant]
     Dosage: 4 TIMES 2 PER DAY

REACTIONS (5)
  - ATRIOVENTRICULAR BLOCK FIRST DEGREE [None]
  - DIARRHOEA [None]
  - SYNCOPE [None]
  - VERTIGO [None]
  - VOMITING [None]
